FAERS Safety Report 9700093 (Version 1)
Quarter: 2013Q4

REPORT INFORMATION
  Report Type: Spontaneous
  Country: IT (occurrence: IT)
  Receive Date: 20131121
  Receipt Date: 20131121
  Transmission Date: 20140711
  Serious: Yes (Death, Other)
  Sender: FDA-Public Use
  Company Number: IT-ASTRAZENECA-2013SE84724

PATIENT
  Age: 95 Year
  Sex: Female

DRUGS (1)
  1. SEROQUEL [Suspect]
     Indication: COGNITIVE DISORDER
     Route: 048
     Dates: start: 20130201, end: 20130831

REACTIONS (3)
  - Tongue paralysis [Fatal]
  - Diplegia [Unknown]
  - Dysphonia [Unknown]
